FAERS Safety Report 9708760 (Version 3)
Quarter: 2013Q4

REPORT INFORMATION
  Report Type: Spontaneous
  Country: JP (occurrence: JP)
  Receive Date: 20131125
  Receipt Date: 20131217
  Transmission Date: 20140711
  Serious: Yes (Other)
  Sender: FDA-Public Use
  Company Number: JP-GLAXOSMITHKLINE-B0947263A

PATIENT
  Age: 17 Year
  Sex: Male
  Weight: 60 kg

DRUGS (4)
  1. SERETIDE (50MCG/500MCG) [Suspect]
     Indication: ASTHMA
     Dosage: 500MCG TWICE PER DAY
     Route: 055
     Dates: start: 20131018
  2. MEPTIN AIR [Concomitant]
     Indication: ASTHMA
     Route: 055
     Dates: start: 20131108
  3. ALESION [Concomitant]
     Indication: RHINITIS ALLERGIC
     Dosage: 20MG PER DAY
     Route: 048
  4. UNKNOWN DRUG [Concomitant]
     Route: 065

REACTIONS (9)
  - Anaphylactic reaction [Unknown]
  - Pharyngeal oedema [Unknown]
  - Malaise [Unknown]
  - Pallor [Recovered/Resolved]
  - Lip discolouration [Recovered/Resolved]
  - Ocular hyperaemia [Unknown]
  - Lip swelling [Unknown]
  - Lip discolouration [Unknown]
  - Rash [Unknown]
